FAERS Safety Report 10530623 (Version 1)
Quarter: 2014Q4

REPORT INFORMATION
  Report Type: Spontaneous
  Country: IN (occurrence: None)
  Receive Date: 20141017
  Receipt Date: 20141017
  Transmission Date: 20150528
  Serious: Yes (Other)
  Sender: FDA-Public Use
  Company Number: 2014COR00091

PATIENT
  Age: 26 Year
  Sex: Female
  Weight: 52.9 kg

DRUGS (2)
  1. DEXAMETHASONE. [Suspect]
     Active Substance: DEXAMETHASONE
     Indication: WEIGHT INCREASED
  2. CYPROHEPTADINE HYDROCHLORIDE. [Suspect]
     Active Substance: CYPROHEPTADINE HYDROCHLORIDE
     Indication: WEIGHT INCREASED

REACTIONS (7)
  - Splinter haemorrhages [None]
  - Visual field defect [None]
  - Intracranial pressure increased [None]
  - Vision blurred [None]
  - Self-medication [None]
  - Papilloedema [None]
  - Weight increased [None]
